FAERS Safety Report 6211956-9 (Version None)
Quarter: 2009Q2

REPORT INFORMATION
  Report Type: 
  Country: None (occurrence: None)
  Receive Date: 20090601
  Receipt Date: 20090514
  Transmission Date: 20091009
  Serious: Yes (Hospitalization)
  Sender: FDA-Public Use
  Company Number: PIR# 0905038

PATIENT
  Age: 17 Month
  Sex: Male
  Weight: 12.1 kg

DRUGS (1)
  1. HESPAN 6% [Suspect]

REACTIONS (15)
  - ANAEMIA [None]
  - COAGULATION TEST ABNORMAL [None]
  - DRUG LEVEL INCREASED [None]
  - ERYTHROPOIESIS ABNORMAL [None]
  - FACTOR VIII DEFICIENCY [None]
  - GRANULOCYTES MATURATION ARREST [None]
  - HAEMATOMA [None]
  - HEPATOSPLENOMEGALY [None]
  - MEGAKARYOCYTES INCREASED [None]
  - POST PROCEDURAL HAEMORRHAGE [None]
  - PRURITUS [None]
  - PUPILS UNEQUAL [None]
  - SOMNOLENCE [None]
  - SUBDURAL HAEMATOMA [None]
  - THROMBOCYTOPENIA [None]
